FAERS Safety Report 12737059 (Version 2)
Quarter: 2016Q4

REPORT INFORMATION
  Report Type: Report from Study
  Country: US (occurrence: US)
  Receive Date: 20160913
  Receipt Date: 20161006
  Transmission Date: 20170207
  Serious: Yes (Death)
  Sender: FDA-Public Use
  Company Number: US-SYNEX-T201604001

PATIENT
  Age: 1 Day
  Sex: Male
  Weight: .67 kg

DRUGS (15)
  1. NITRIC OXIDE. [Suspect]
     Active Substance: NITRIC OXIDE
     Dosage: 5 PPM
     Dates: start: 20160818, end: 20160818
  2. NITRIC OXIDE. [Suspect]
     Active Substance: NITRIC OXIDE
     Dosage: 15 PPM
     Dates: start: 20160818, end: 20160818
  3. NITRIC OXIDE. [Suspect]
     Active Substance: NITRIC OXIDE
     Dosage: 10 PPM
     Dates: start: 20160818, end: 20160818
  4. CAFFEINE. [Concomitant]
     Active Substance: CAFFEINE
     Indication: APNOEA
     Dosage: 13 MG
     Route: 042
     Dates: start: 20160818, end: 20160818
  5. NITRIC OXIDE. [Suspect]
     Active Substance: NITRIC OXIDE
     Dosage: 4 PPM
     Dates: start: 20160818, end: 20160818
  6. PORACTANT ALFA [Concomitant]
     Active Substance: PORACTANT ALFA
     Dosage: 0.8 ML
     Route: 007
     Dates: start: 20160819, end: 20160819
  7. NITRIC OXIDE. [Suspect]
     Active Substance: NITRIC OXIDE
     Dosage: 2 PPM
     Dates: start: 20160818, end: 20160818
  8. PORACTANT ALFA [Concomitant]
     Active Substance: PORACTANT ALFA
     Indication: NEONATAL RESPIRATORY DISTRESS SYNDROME
     Dosage: 1.675 ML
     Route: 007
     Dates: start: 20160818, end: 20160818
  9. DOPAMINE [Concomitant]
     Active Substance: DOPAMINE\DOPAMINE HYDROCHLORIDE
     Indication: HYPOTENSION
     Dosage: UNK
     Route: 042
     Dates: start: 20160819, end: 20160819
  10. NITRIC OXIDE. [Suspect]
     Active Substance: NITRIC OXIDE
     Indication: OXYGEN SATURATION DECREASED
     Dosage: 20 PPM
     Dates: start: 20160818, end: 20160818
  11. NITRIC OXIDE. [Suspect]
     Active Substance: NITRIC OXIDE
     Dosage: 1 PPM
     Dates: start: 20160818, end: 20160818
  12. AMPICILLIN [Concomitant]
     Active Substance: AMPICILLIN
     Indication: INFECTION
     Dosage: 67 MG
     Route: 042
     Dates: start: 20160818, end: 20160819
  13. NITRIC OXIDE. [Suspect]
     Active Substance: NITRIC OXIDE
     Dosage: 3 PPM
     Dates: start: 20160818, end: 20160818
  14. AMIKACIN [Concomitant]
     Active Substance: AMIKACIN
     Indication: INFECTION
     Dosage: 9.4 MG
     Route: 042
     Dates: start: 20160818, end: 20160819
  15. FENTANYL. [Concomitant]
     Active Substance: FENTANYL
     Indication: PAIN
     Dosage: 2 MCG/KG/HR
     Route: 042
     Dates: start: 20160818, end: 20160819

REACTIONS (1)
  - Bradycardia [Fatal]

NARRATIVE: CASE EVENT DATE: 20160819
